FAERS Safety Report 9348755 (Version 1)
Quarter: 2013Q2

REPORT INFORMATION
  Report Type: Spontaneous
  Country: ES (occurrence: ES)
  Receive Date: 20130614
  Receipt Date: 20130614
  Transmission Date: 20140414
  Serious: Yes (Other)
  Sender: FDA-Public Use
  Company Number: ES-009507513-1306ESP006128

PATIENT
  Age: 50 Year
  Sex: Male
  Weight: 112 kg

DRUGS (1)
  1. JANUVIA [Suspect]
     Indication: TYPE 2 DIABETES MELLITUS
     Dosage: 1 COMP/DIA
     Route: 048
     Dates: start: 20130307, end: 20130530

REACTIONS (1)
  - Hyperamylasaemia [Unknown]
